FAERS Safety Report 11937869 (Version 1)
Quarter: 2016Q1

REPORT INFORMATION
  Report Type: Spontaneous
  Country: US (occurrence: None)
  Receive Date: 20160120
  Receipt Date: 20160120
  Transmission Date: 20160526
  Serious: No
  Sender: FDA-Public Use
  Company Number: None

PATIENT
  Age: 54 Year
  Sex: Male

DRUGS (1)
  1. OXYCODONE 30MG QUALITEST [Suspect]
     Active Substance: OXYCODONE
     Indication: PAIN
     Dosage: 30MG Q 4-6H PO
     Route: 048
     Dates: start: 20151123, end: 20160108

REACTIONS (3)
  - Product quality issue [None]
  - Rash pruritic [None]
  - Rash erythematous [None]

NARRATIVE: CASE EVENT DATE: 20151123
